FAERS Safety Report 8688176 (Version 3)
Quarter: 2012Q4

REPORT INFORMATION
  Report Type: 
  Country: CA (occurrence: CA)
  Receive Date: 20120727
  Receipt Date: 20121018
  Transmission Date: 20130627
  Serious: Yes (Hospitalization)
  Sender: FDA-Public Use
  Company Number: CA-ROCHE-1091564

PATIENT
  Age: 17 Year
  Sex: Female

DRUGS (11)
  1. XOLAIR [Suspect]
     Indication: ASTHMA
     Route: 058
     Dates: start: 20120716
  2. SYMBICORT [Concomitant]
     Route: 065
  3. SINGULAIR [Concomitant]
     Route: 065
  4. CYCLOSPORINE [Concomitant]
     Route: 065
  5. VENTOLIN [Concomitant]
     Route: 065
  6. BRICANYL [Concomitant]
  7. NEORAL [Concomitant]
  8. SEPTRA [Concomitant]
  9. NASONEX [Concomitant]
  10. SINUS RINSE (UNK INGREDIENTS) [Concomitant]
  11. ADVIL [Concomitant]

REACTIONS (4)
  - Asthma [Unknown]
  - Sinusitis [Unknown]
  - Pneumonia [Unknown]
  - Hypertension [Unknown]
